FAERS Safety Report 8732160 (Version 2)
Quarter: 2013Q1

REPORT INFORMATION
  Report Type: Report from Study
  Country: JP (occurrence: JP)
  Receive Date: 20120820
  Receipt Date: 20130128
  Transmission Date: 20140127
  Serious: Yes (Other)
  Sender: FDA-Public Use
  Company Number: JP-009507513-1208JPN007382

PATIENT
  Age: 69 Year
  Sex: Female
  Weight: 49 kg

DRUGS (23)
  1. PEGINTRON [Suspect]
     Indication: CHRONIC HEPATITIS C
     Dosage: 1.63 MICROGRAM PER KILOGRAM/WEEK
     Route: 058
     Dates: start: 20120417, end: 20120423
  2. PEGINTRON [Suspect]
     Dosage: 1.63 MICROGRAM PER KILOGRAM, QW
     Route: 058
     Dates: start: 20120424, end: 20120430
  3. PEGINTRON [Suspect]
     Dosage: 1.30 MICROGRAM PER KILOGRAM, QW
     Route: 058
     Dates: start: 20120501, end: 20120611
  4. PEGINTRON [Suspect]
     Dosage: 1.08 MICROGRAM PER KILOGRAM, QW
     Route: 058
     Dates: start: 20120612, end: 20120716
  5. PEGINTRON [Suspect]
     Dosage: 1.30 MICROGRAM PER KILOGRAM, QW
     Route: 058
     Dates: start: 20120717, end: 20120806
  6. PEGINTRON [Suspect]
     Dosage: 1.08 MICROGRAM PER KILOGRAM, QW
     Route: 058
     Dates: start: 20120807, end: 20120813
  7. PEGINTRON [Suspect]
     Dosage: 1.30 MICROGRAM PER KILOGRAM, QW
     Route: 058
     Dates: start: 20120814, end: 20120827
  8. PEGINTRON [Suspect]
     Dosage: 1.08 MICROGRAM PER KILOGRAM, QW
     Route: 058
     Dates: start: 20120828, end: 20120917
  9. PEGINTRON [Suspect]
     Dosage: 1.30 MICROGRAM PER KILOGRAM, QW
     Route: 058
     Dates: start: 20120918
  10. REBETOL [Suspect]
     Indication: CHRONIC HEPATITIS C
     Dosage: 600 MG, QD
     Route: 048
     Dates: start: 20120417, end: 20120521
  11. REBETOL [Suspect]
     Dosage: 400 MG, QD
     Route: 048
     Dates: start: 20120522, end: 20120604
  12. REBETOL [Suspect]
     Dosage: 200 MG, QD
     Route: 048
     Dates: start: 20120605, end: 20120611
  13. REBETOL [Suspect]
     Dosage: 200 MG ON ALTERNATE DAYS
     Route: 048
     Dates: start: 20120703, end: 20120716
  14. REBETOL [Suspect]
     Dosage: 200 MG, QD
     Route: 048
     Dates: start: 20120717, end: 20120730
  15. REBETOL [Suspect]
     Dosage: 400 MG, QD
     Route: 048
     Dates: start: 20120731, end: 20120827
  16. REBETOL [Suspect]
     Dosage: 200 MG, QD
     Route: 048
     Dates: start: 20120828, end: 20120924
  17. REBETOL [Suspect]
     Dosage: 400 MG, QD
     Route: 048
     Dates: start: 20120825
  18. TELAVIC [Suspect]
     Indication: CHRONIC HEPATITIS C
     Dosage: 1500 MG, QD
     Route: 048
     Dates: start: 20120417, end: 20120604
  19. TELAVIC [Suspect]
     Dosage: 750 MG, QD
     Route: 048
     Dates: start: 20120605, end: 20120611
  20. TELAVIC [Suspect]
     Dosage: 500 MG, QD
     Route: 048
     Dates: start: 20120612, end: 20120618
  21. DEPAS [Suspect]
     Indication: ADVERSE EVENT
     Dosage: 0.5 MG, QD
     Route: 048
     Dates: start: 20120508, end: 20120716
  22. DOGMATYL [Suspect]
     Indication: ADVERSE EVENT
     Dosage: 100 MG, QD
     Route: 048
     Dates: start: 20120418, end: 20120710
  23. PREMINENT [Concomitant]
     Indication: HYPERTENSION
     Dosage: 1 DF, QD
     Route: 048
     Dates: start: 20120605, end: 20120618

REACTIONS (9)
  - Anaemia [Not Recovered/Not Resolved]
  - Haemoglobin decreased [Recovered/Resolved]
  - White blood cell count decreased [Not Recovered/Not Resolved]
  - Decreased appetite [None]
  - Tremor [None]
  - Oral disorder [None]
  - Malaise [None]
  - Retinal pigmentation [None]
  - Insomnia [None]
